FAERS Safety Report 5826832-0 (Version None)
Quarter: 2008Q3

REPORT INFORMATION
  Report Type: 
  Country: None (occurrence: None)
  Receive Date: 20080725
  Receipt Date: 20080717
  Transmission Date: 20090109
  Serious: Yes (Hospitalization)
  Sender: FDA-Public Use
  Company Number: FACT0800113

PATIENT
  Age: 45 Year
  Sex: Female

DRUGS (3)
  1. FACTIVE [Suspect]
     Indication: SINUSITIS
     Dosage: 320 MG, QD, ORAL
     Route: 048
     Dates: start: 20080606, end: 20080608
  2. ATENOLOL [Concomitant]
  3. ASPIRIN [Concomitant]

REACTIONS (3)
  - ANAPHYLACTOID REACTION [None]
  - BRONCHITIS [None]
  - STRESS AT WORK [None]
